FAERS Safety Report 5657343-3 (Version None)
Quarter: 2008Q1

REPORT INFORMATION
  Report Type: 
  Country: None (occurrence: None)
  Receive Date: 20080310
  Receipt Date: 20080225
  Transmission Date: 20080703
  Serious: Yes (Hospitalization)
  Sender: FDA-Public Use
  Company Number: US-JNJFOC-20080206001

PATIENT
  Sex: Female
  Weight: 42.77 kg

DRUGS (10)
  1. ORTHO EVRA [Suspect]
     Indication: MENSTRUATION IRREGULAR
     Route: 062
  2. ORTHO EVRA [Suspect]
     Indication: DYSMENORRHOEA
     Route: 062
  3. DOSTINEX [Concomitant]
     Indication: DRUG USE FOR UNKNOWN INDICATION
  4. ACIPHEX [Concomitant]
     Indication: DRUG USE FOR UNKNOWN INDICATION
  5. METROGEL [Concomitant]
     Indication: DRUG USE FOR UNKNOWN INDICATION
  6. XYREM [Concomitant]
     Indication: DRUG USE FOR UNKNOWN INDICATION
  7. ALLEGRA [Concomitant]
     Indication: DRUG USE FOR UNKNOWN INDICATION
  8. ROBITUSSEN [Concomitant]
     Indication: DRUG USE FOR UNKNOWN INDICATION
  9. FLONASE [Concomitant]
     Indication: DRUG USE FOR UNKNOWN INDICATION
  10. ATENOLOL [Concomitant]
     Indication: DRUG USE FOR UNKNOWN INDICATION

REACTIONS (3)
  - CHEST PAIN [None]
  - OFF LABEL USE [None]
  - PULMONARY EMBOLISM [None]
